FAERS Safety Report 7819187-3 (Version None)
Quarter: 2011Q4

REPORT INFORMATION
  Report Type: 
  Country: None (occurrence: None)
  Receive Date: 20111012
  Receipt Date: 20110929
  Transmission Date: 20120403
  Serious: Yes (Other)
  Sender: FDA-Public Use
  Company Number: 2011MA014775

PATIENT
  Age: 1 Day
  Sex: Female

DRUGS (10)
  1. BACLOFEN [Suspect]
     Dosage: 10 MG; TRPL
     Route: 064
  2. PROPAVAN (PROPIOMAZINE MALEATE) [Suspect]
     Indication: PROPHYLAXIS
     Dosage: 25 MG, QD; TRPL
     Route: 064
  3. NITRAZEPAM [Suspect]
     Indication: PROPHYLAXIS
     Dosage: 5 MG; QD; TRPL
     Route: 064
  4. LYRICA [Suspect]
     Dosage: 350 MG;QD;TRPL
     Route: 064
  5. ALFENTANIL [Suspect]
     Dosage: 0.5 MG IV
     Route: 042
     Dates: start: 20110713, end: 20110713
  6. CARBAMAZEPINE [Suspect]
     Indication: EPILEPSY
     Dosage: 1800 MG; QD;TRPL
     Route: 064
  7. ZOLPIDEM TARTRATE [Suspect]
     Indication: PROPHYLAXIS
     Dosage: 10 MG;QD;TRPL
     Route: 064
  8. VENLAFAXINE HYDROCHLORIDE [Suspect]
     Dosage: 75 MG;QD;TRPL
     Route: 064
  9. PENTOTHAL MATRIUM (THIOPENTAL SODIUM) [Suspect]
     Dosage: 500 MG; IV
     Route: 042
     Dates: start: 20110713, end: 20110713
  10. CELOCURIN (SUXAMETHONIUM CHLORIDE) [Suspect]
     Dosage: 100 MG; IV
     Route: 042
     Dates: start: 20110713, end: 20110713

REACTIONS (4)
  - RESPIRATORY DEPRESSION [None]
  - FATIGUE [None]
  - CAESAREAN SECTION [None]
  - MATERNAL DRUGS AFFECTING FOETUS [None]
